FAERS Safety Report 5387095-6 (Version None)
Quarter: 2007Q3

REPORT INFORMATION
  Report Type: 
  Country: None (occurrence: None)
  Receive Date: 20070711
  Receipt Date: 20070626
  Transmission Date: 20080115
  Serious: Yes (Death, Hospitalization)
  Sender: FDA-Public Use
  Company Number: 2007BI008968

PATIENT
  Age: 59 Year
  Sex: Female

DRUGS (2)
  1. NATALIZUMAB [Suspect]
     Indication: MULTIPLE SCLEROSIS
     Dosage: 300 MG; QM; IV
     Route: 042
     Dates: start: 20061017
  2. AVONEX [Concomitant]

REACTIONS (9)
  - CONFUSIONAL STATE [None]
  - DISEASE RECURRENCE [None]
  - MUSCLE SPASMS [None]
  - NEUROGENIC BLADDER [None]
  - OPPORTUNISTIC INFECTION [None]
  - PATHOGEN RESISTANCE [None]
  - PSEUDOMONAS INFECTION [None]
  - URINARY TRACT INFECTION ENTEROCOCCAL [None]
  - UROSEPSIS [None]
